FAERS Safety Report 21324041 (Version 1)
Quarter: 2022Q3

REPORT INFORMATION
  Report Type: Spontaneous
  Country: US (occurrence: None)
  Receive Date: 20220910
  Receipt Date: 20220910
  Transmission Date: 20221027
  Serious: Yes (Life-Threatening, Hospitalization, Other)
  Sender: FDA-Public Use
  Company Number: None

PATIENT
  Age: 18 Year
  Sex: Female
  Weight: 50.85 kg

DRUGS (4)
  1. TERBUTALINE [Suspect]
     Active Substance: TERBUTALINE
     Indication: Premature labour
     Route: 048
  2. AMLODIPINE [Concomitant]
     Active Substance: AMLODIPINE BESYLATE
  3. LOSARTAN [Concomitant]
     Active Substance: LOSARTAN
  4. ATENOLOL [Concomitant]
     Active Substance: ATENOLOL

REACTIONS (11)
  - Cardiovascular disorder [None]
  - Chest pain [None]
  - Dyspnoea [None]
  - Asthenia [None]
  - Oxygen saturation decreased [None]
  - Tachycardia [None]
  - Myocardial necrosis marker increased [None]
  - Blood potassium decreased [None]
  - Arteriospasm coronary [None]
  - Maternal exposure during delivery [None]
  - Marfan^s syndrome [None]

NARRATIVE: CASE EVENT DATE: 20030213
